FAERS Safety Report 9895483 (Version 2)
Quarter: 2014Q1

REPORT INFORMATION
  Report Type: Spontaneous
  Country: US (occurrence: US)
  Receive Date: 20140213
  Receipt Date: 20140213
  Transmission Date: 20141002
  Serious: No
  Sender: FDA-Public Use
  Company Number: US-BRISTOL-MYERS SQUIBB COMPANY-19406156

PATIENT
  Age: 62 Year
  Sex: Female
  Weight: 136.05 kg

DRUGS (14)
  1. ABATACEPT SUBQ INJECTION 125MG/ML [Suspect]
     Indication: RHEUMATOID ARTHRITIS
     Route: 058
     Dates: start: 20130813, end: 201309
  2. METHOTREXATE [Suspect]
  3. HYDROCHLOROTHIAZIDE [Suspect]
  4. FOLIC ACID [Concomitant]
  5. GABAPENTIN [Concomitant]
  6. POTASSIUM [Concomitant]
  7. HYDROXYCHLOROQUINE [Concomitant]
  8. VITAMIN B12 [Concomitant]
  9. LOSARTAN [Concomitant]
  10. LOTENSIN [Concomitant]
  11. VITAMIN B6 [Concomitant]
  12. OSTEO BI-FLEX [Concomitant]
  13. GLIPIZIDE [Concomitant]
  14. SYNTHROID [Concomitant]

REACTIONS (4)
  - Nasopharyngitis [Not Recovered/Not Resolved]
  - Sinusitis [Not Recovered/Not Resolved]
  - Bronchitis [Not Recovered/Not Resolved]
  - Gout [Not Recovered/Not Resolved]
